FAERS Safety Report 8603536-2 (Version None)
Quarter: 2012Q3

REPORT INFORMATION
  Report Type: 
  Country: None (occurrence: None)
  Receive Date: 20120817
  Receipt Date: 20120810
  Transmission Date: 20120928
  Serious: Yes (Death, Other)
  Sender: FDA-Public Use
  Company Number: JP-PFIZER INC-2012176808

PATIENT
  Age: 48 Year
  Sex: Female

DRUGS (5)
  1. LYRICA [Suspect]
     Indication: CANCER PAIN
     Dosage: 175 MG DAILY
     Route: 048
     Dates: start: 20120613
  2. FENTANYL CITRATE [Concomitant]
     Dosage: UNK
  3. OXYCONTIN [Concomitant]
     Dosage: UNK
  4. BETAMETHASONE [Concomitant]
     Dosage: UNK
  5. LOXONIN [Concomitant]
     Dosage: UNK

REACTIONS (3)
  - OESOPHAGEAL CARCINOMA [None]
  - ANGIOEDEMA [None]
  - OFF LABEL USE [None]
